FAERS Safety Report 23935578 (Version 1)
Quarter: 2024Q2

REPORT INFORMATION
  Report Type: Spontaneous
  Country: US (occurrence: US)
  Receive Date: 20240604
  Receipt Date: 20240604
  Transmission Date: 20240716
  Serious: Yes (Other)
  Sender: FDA-Public Use
  Company Number: US-KOANAAP-SML-US-2024-00501

PATIENT
  Age: 7 Decade
  Sex: Female

DRUGS (2)
  1. GEMCITABINE [Suspect]
     Active Substance: GEMCITABINE
     Indication: Biliary cancer metastatic
     Dosage: ON DAYS 1 AND 8 Q21 DAYS
     Route: 065
  2. CISPLATIN [Suspect]
     Active Substance: CISPLATIN
     Indication: Biliary cancer metastatic
     Dosage: 25/M2 ON DAYS 1 AND 8 Q21 DAYS
     Route: 065

REACTIONS (2)
  - Drug ineffective [Unknown]
  - Disease progression [Unknown]
